FAERS Safety Report 15739243 (Version 1)
Quarter: 2018Q4

REPORT INFORMATION
  Report Type: Spontaneous
  Country: GB (occurrence: GB)
  Receive Date: 20181219
  Receipt Date: 20181219
  Transmission Date: 20190205
  Serious: Yes (Death)
  Sender: FDA-Public Use
  Company Number: PHHY2018GB189474

PATIENT
  Sex: Female

DRUGS (1)
  1. PANOBINOSTAT [Suspect]
     Active Substance: PANOBINOSTAT
     Indication: PRODUCT USED FOR UNKNOWN INDICATION
     Dosage: 1 OT, CYCLIC
     Route: 065

REACTIONS (3)
  - Platelet count decreased [Unknown]
  - Plasma cell myeloma [Fatal]
  - Diarrhoea [Unknown]
